FAERS Safety Report 4429823-X (Version None)
Quarter: 2004Q3

REPORT INFORMATION
  Report Type: 
  Country: None (occurrence: None)
  Receive Date: 20040817
  Receipt Date: 20040802
  Transmission Date: 20050211
  Serious: Yes (Hospitalization)
  Sender: FDA-Public Use
  Company Number: 04P-163-0256467-00

PATIENT
  Age: 59 Year
  Sex: Female

DRUGS (7)
  1. VICODIN [Suspect]
     Dosage: 2 TABLET, 1 IN 1 D PER ORAL
     Route: 048
     Dates: start: 20040220, end: 20040220
  2. GABITRIL [Suspect]
     Indication: INSOMNIA
     Dosage: SEE IMAGE
     Dates: start: 20040114, end: 20040209
  3. GABITRIL [Suspect]
     Indication: INSOMNIA
     Dosage: SEE IMAGE
     Dates: start: 20040210, end: 20040220
  4. ALENDRONATE SODIUM [Concomitant]
  5. ESCITALOPRAM OXALATE [Concomitant]
  6. CANDESARTAN CILEXETIL [Concomitant]
  7. METOPROLOL [Concomitant]

REACTIONS (17)
  - ABNORMAL BEHAVIOUR [None]
  - AGGRESSION [None]
  - AMNESIA [None]
  - COGNITIVE DISORDER [None]
  - CONFUSIONAL STATE [None]
  - CONVULSION [None]
  - DISORIENTATION [None]
  - ELECTROCARDIOGRAM ABNORMAL [None]
  - ELECTROCARDIOGRAM ST-T CHANGE [None]
  - FALL [None]
  - LOSS OF CONSCIOUSNESS [None]
  - MENTAL STATUS CHANGES [None]
  - SPEECH DISORDER [None]
  - SYNCOPE [None]
  - THERAPY NON-RESPONDER [None]
  - TRANSIENT ISCHAEMIC ATTACK [None]
  - URINARY INCONTINENCE [None]
